FAERS Safety Report 16062600 (Version 1)
Quarter: 2019Q1

REPORT INFORMATION
  Report Type: Spontaneous
  Country: US (occurrence: US)
  Receive Date: 20190312
  Receipt Date: 20190312
  Transmission Date: 20190418
  Serious: Yes (Hospitalization)
  Sender: FDA-Public Use
  Company Number: US-TEVA-2019-US-1013309

PATIENT
  Age: 62 Year
  Sex: Male
  Weight: 154 kg

DRUGS (8)
  1. PROAIR HFA [Suspect]
     Active Substance: ALBUTEROL SULFATE
     Indication: ASTHMA
     Dosage: CHANGED FROM EVERY 6 HOURS AS NEEDED TO EVERY 4 HOURS
     Dates: start: 2017
  2. PROAIR HFA [Suspect]
     Active Substance: ALBUTEROL SULFATE
     Indication: ATRIAL FIBRILLATION
  3. PROAIR HFA [Suspect]
     Active Substance: ALBUTEROL SULFATE
     Indication: SLEEP APNOEA SYNDROME
  4. AYR SALINE [Suspect]
     Active Substance: SODIUM CHLORIDE
     Route: 065
  5. SIMVASTATIN. [Concomitant]
     Active Substance: SIMVASTATIN
  6. TRIAMTERENE. [Concomitant]
     Active Substance: TRIAMTERENE
  7. WARFARIN [Concomitant]
     Active Substance: WARFARIN
     Route: 065
  8. METOPROLOL. [Concomitant]
     Active Substance: METOPROLOL

REACTIONS (5)
  - Rhinitis atrophic [Not Recovered/Not Resolved]
  - Peripheral swelling [Not Recovered/Not Resolved]
  - Insomnia [Not Recovered/Not Resolved]
  - Hip arthroplasty [Unknown]
  - Rhinorrhoea [None]

NARRATIVE: CASE EVENT DATE: 2018
